FAERS Safety Report 6271105-8 (Version None)
Quarter: 2009Q3

REPORT INFORMATION
  Report Type: 
  Country: None (occurrence: None)
  Receive Date: 20090716
  Receipt Date: 20081027
  Transmission Date: 20100115
  Serious: No
  Sender: FDA-Public Use
  Company Number: US-TYCO HEALTHCARE/MALLINCKRODT-T200801827

PATIENT

DRUGS (10)
  1. OXYCODONE HCL AND ACETAMINOPHEN [Suspect]
     Indication: PAIN
     Dates: start: 19940101
  2. OXYCODONE HCL [Concomitant]
     Dosage: 15 MG, BID (AM AND PM)
  3. LITHIUM CARBONATE [Concomitant]
     Dosage: 600 MG, BID (2 IN AM, 2 IN PM)
  4. LEVOTHYROXINE SODIUM [Concomitant]
     Dosage: 200 UG, QD
  5. LEVOTHYROXINE SODIUM [Concomitant]
     Dosage: 50 UG, QD
  6. SEROQUEL [Concomitant]
     Dosage: 100 MG, QD (QHS)
  7. SEROQUEL [Concomitant]
     Dosage: 25 MG, QD (QHS)
  8. ZYPREXA [Concomitant]
     Dosage: 20 MG, QD (QHS)
  9. ZYPREXA [Concomitant]
     Dosage: 5 MG, QD (QHS)
  10. CARISOPRODOL [Concomitant]
     Dosage: 350 MG, QID (1 TAB Q6H)

REACTIONS (2)
  - DRUG INEFFECTIVE [None]
  - INCORRECT DOSE ADMINISTERED [None]
